FAERS Safety Report 8767896 (Version 1)
Quarter: 2012Q4

REPORT INFORMATION
  Report Type: 
  Country: CA (occurrence: CA)
  Receive Date: 20120830
  Receipt Date: 20120830
  Transmission Date: 20130627
  Serious: Yes (Hospitalization, Other)
  Sender: FDA-Public Use
  Company Number: CA-ELI_LILLY_AND_COMPANY-CA201208008017

PATIENT
  Age: 73 Year
  Sex: Female

DRUGS (10)
  1. FORTEO [Suspect]
     Indication: OSTEOPOROSIS
     Dosage: 20 ug, qd
     Route: 058
     Dates: start: 20120803
  2. FORTEO [Suspect]
     Dosage: 20 ug, qd
     Route: 058
  3. ATACAND [Concomitant]
     Dosage: 32 mg, UNK
  4. VITAMIN D NOS [Concomitant]
     Dosage: 1000 IU, UNK
  5. CALCIUM [Concomitant]
     Dosage: 750 mg, UNK
  6. OMEGA-3 FATTY ACIDS [Concomitant]
     Dosage: 100 mg, UNK
  7. ZOCOR [Concomitant]
     Dosage: 40 mg, UNK
  8. FLOVENT [Concomitant]
     Dosage: 250 ug, bid
  9. VENTOLIN                                /SCH/ [Concomitant]
     Dosage: 2 DF, prn
  10. STRESS VITAMIN B COMPLEX WITH C [Concomitant]

REACTIONS (7)
  - Chest pain [Unknown]
  - Atrial fibrillation [Recovered/Resolved]
  - Cardiac flutter [Recovered/Resolved]
  - Pericardial effusion [Unknown]
  - Pleural effusion [Unknown]
  - Dysphonia [Unknown]
  - Dyspnoea [Unknown]
